FAERS Safety Report 5646607-5 (Version None)
Quarter: 2008Q1

REPORT INFORMATION
  Report Type: 
  Country: None (occurrence: None)
  Receive Date: 20080228
  Receipt Date: 20080220
  Transmission Date: 20080703
  Serious: Yes (Other)
  Sender: FDA-Public Use
  Company Number: 2008004517

PATIENT
  Sex: Female

DRUGS (1)
  1. VISINE EYE ALLERGY (PHENIRAMINE MALEATE, NAPHAZOLINE HYDROCHLORIDE) [Suspect]
     Indication: HYPERSENSITIVITY
     Dosage: 2 DROPS IN THE RIGHT EYE ONCE, OPHTHALMIC
     Route: 047

REACTIONS (7)
  - BLISTER [None]
  - EYE INFECTION [None]
  - EYE IRRITATION [None]
  - EYE SWELLING [None]
  - HYPERSENSITIVITY [None]
  - INFECTION [None]
  - VISION BLURRED [None]
